FAERS Safety Report 19594179 (Version 1)
Quarter: 2021Q3

REPORT INFORMATION
  Report Type: Spontaneous
  Country: ES (occurrence: ES)
  Receive Date: 20210722
  Receipt Date: 20210722
  Transmission Date: 20211014
  Serious: Yes (Other)
  Sender: FDA-Public Use
  Company Number: ES-MYLANLABS-2021M1043491

PATIENT
  Age: 95 Year
  Sex: Female

DRUGS (3)
  1. CLINDAMICINA                       /00166001/ [Suspect]
     Active Substance: CLINDAMYCIN
     Indication: RESPIRATORY TRACT INFECTION
     Dosage: 600 MILLIGRAM, Q8H
     Route: 042
     Dates: start: 20191120, end: 20191126
  2. MEROPENEM. [Suspect]
     Active Substance: MEROPENEM
     Indication: RESPIRATORY TRACT INFECTION
     Dosage: 1 GRAM, Q8H
     Route: 042
     Dates: start: 20191126, end: 20191129
  3. LEVOFLOXACIN. [Suspect]
     Active Substance: LEVOFLOXACIN
     Indication: RESPIRATORY TRACT INFECTION
     Dosage: 250 MILLIGRAM, QD (250MG/24H)
     Route: 042
     Dates: start: 20191118, end: 20191126

REACTIONS (2)
  - Toxic skin eruption [Unknown]
  - Eosinophilia [Unknown]

NARRATIVE: CASE EVENT DATE: 20191130
